FAERS Safety Report 4824063-4 (Version None)
Quarter: 2005Q4

REPORT INFORMATION
  Report Type: 
  Country: None (occurrence: None)
  Receive Date: 20051108
  Receipt Date: 20051026
  Transmission Date: 20060501
  Serious: Yes (Hospitalization, Other)
  Sender: FDA-Public Use
  Company Number: USA0507103395

PATIENT
  Age: 24 Year
  Sex: Female

DRUGS (11)
  1. XIGRIS [Suspect]
     Indication: SEPSIS
     Dosage: 24 UG/KG/HR
     Dates: start: 20050718, end: 20050720
  2. PHENYLEPHRINE [Concomitant]
  3. ATIVAN [Concomitant]
  4. VANCOMYCIN [Concomitant]
  5. GENTAMICIN [Concomitant]
  6. METHADONE HCL [Concomitant]
  7. FENTANYL [Concomitant]
  8. ATROVENT [Concomitant]
  9. HEPARIN [Concomitant]
  10. PROTONIX [Concomitant]
  11. NICOTINE [Concomitant]

REACTIONS (6)
  - ACTIVATED PARTIAL THROMBOPLASTIN TIME PROLONGED [None]
  - DRUG EXPOSURE DURING PREGNANCY [None]
  - LIFE SUPPORT [None]
  - PREMATURE SEPARATION OF PLACENTA [None]
  - PROTHROMBIN TIME PROLONGED [None]
  - STILLBIRTH [None]
